FAERS Safety Report 9455545 (Version 1)
Quarter: 2013Q3

REPORT INFORMATION
  Report Type: Spontaneous
  Country: US (occurrence: US)
  Receive Date: 20130813
  Receipt Date: 20130813
  Transmission Date: 20140515
  Serious: No
  Sender: FDA-Public Use
  Company Number: US-PFIZER INC-2013232033

PATIENT
  Sex: Male

DRUGS (2)
  1. CORDARONE [Suspect]
     Dosage: UNK
  2. FENTANYL [Interacting]
     Dosage: UNK

REACTIONS (2)
  - Drug interaction [Unknown]
  - Pain in extremity [Unknown]
